FAERS Safety Report 19187861 (Version 1)
Quarter: 2021Q2

REPORT INFORMATION
  Report Type: Spontaneous
  Country: CA (occurrence: CA)
  Receive Date: 20210428
  Receipt Date: 20210428
  Transmission Date: 20210717
  Serious: Yes (Hospitalization)
  Sender: FDA-Public Use
  Company Number: CA-BAXTER-2021BAX008580

PATIENT
  Age: 47 Year

DRUGS (2)
  1. FENTANYL. [Concomitant]
     Active Substance: FENTANYL
     Indication: PRODUCT USED FOR UNKNOWN INDICATION
     Route: 065
  2. BUPIVACAINE IN 8.25% DEXTROSE INJECTION USP [Suspect]
     Active Substance: BUPIVACAINE\DEXTROSE
     Indication: HERNIA REPAIR
     Dosage: 1 AMPOULE, STRENGTH: 0.75%
     Route: 037
     Dates: start: 20210414, end: 20210414

REACTIONS (2)
  - Delayed recovery from anaesthesia [Unknown]
  - Drug ineffective [Unknown]

NARRATIVE: CASE EVENT DATE: 20210414
